FAERS Safety Report 5656952-5 (Version None)
Quarter: 2008Q1

REPORT INFORMATION
  Report Type: 
  Country: None (occurrence: None)
  Receive Date: 20080310
  Receipt Date: 20080228
  Transmission Date: 20080703
  Serious: Yes (Hospitalization)
  Sender: FDA-Public Use
  Company Number: A0699758A

PATIENT
  Age: 46 Year
  Sex: Female
  Weight: 68.2 kg

DRUGS (9)
  1. LAMICTAL [Suspect]
     Indication: CONVULSION
     Dosage: 100MG TWICE PER DAY
     Route: 048
     Dates: start: 20050101
  2. CLOZARIL [Concomitant]
  3. DETROL [Concomitant]
  4. FLOMAX [Concomitant]
  5. NASAL SPRAY [Concomitant]
  6. IPRATROPIUM BROMIDE [Concomitant]
  7. NASONEX [Concomitant]
  8. PRILOSEC [Concomitant]
  9. CLOZAPINE [Concomitant]

REACTIONS (4)
  - ARTHRALGIA [None]
  - DYSKINESIA [None]
  - FALL [None]
  - GRIP STRENGTH DECREASED [None]
